FAERS Safety Report 6129044-9 (Version None)
Quarter: 2009Q1

REPORT INFORMATION
  Report Type: 
  Country: None (occurrence: None)
  Receive Date: 20090324
  Receipt Date: 20090315
  Transmission Date: 20090719
  Serious: Yes (Other)
  Sender: FDA-Public Use
  Company Number: US-JNJFOC-20090304260

PATIENT
  Sex: Male
  Weight: 43.09 kg

DRUGS (1)
  1. TYLENOL [Suspect]
     Indication: INFLUENZA
     Dosage: 2 TEASPOONS, AS NEEDED

REACTIONS (5)
  - ABNORMAL BEHAVIOUR [None]
  - AGITATION [None]
  - INSOMNIA [None]
  - NIGHTMARE [None]
  - PARANOIA [None]
